FAERS Safety Report 8102498-4 (Version None)
Quarter: 2012Q1

REPORT INFORMATION
  Report Type: 
  Country: None (occurrence: None)
  Receive Date: 20120201
  Receipt Date: 20120121
  Transmission Date: 20120608
  Serious: Yes (Other)
  Sender: FDA-Public Use
  Company Number: US-BAYER-2011-115478

PATIENT
  Age: 24 Year
  Sex: Female

DRUGS (6)
  1. DARVOCET-N 50 [Concomitant]
     Indication: PAIN
     Dosage: 1 OR 2 EVERY 6 HOURS, PRN
     Route: 048
  2. ZYRTEC [Concomitant]
     Dosage: 10 MG, HS
     Dates: start: 20090423
  3. DROSPIRENONE AND ETHINYL ESTRADIOL [Suspect]
     Dosage: UNK
     Dates: start: 20080801
  4. LORTAB [Concomitant]
  5. DELSYM [Concomitant]
     Dosage: UNK UNK, BID
     Dates: start: 20090423
  6. YASMIN [Suspect]

REACTIONS (3)
  - CHOLECYSTITIS CHRONIC [None]
  - CHOLECYSTECTOMY [None]
  - INJURY [None]
